FAERS Safety Report 18131601 (Version 7)
Quarter: 2022Q1

REPORT INFORMATION
  Report Type: Report from Study
  Country: US (occurrence: None)
  Receive Date: 20200810
  Receipt Date: 20220210
  Transmission Date: 20220423
  Serious: Yes (Death, Hospitalization, Other)
  Sender: FDA-Public Use
  Company Number: US-ROCHE-2595832

PATIENT
  Age: 74 Year
  Sex: Male
  Weight: 75.1 kg

DRUGS (6)
  1. ATEZOLIZUMAB [Suspect]
     Active Substance: ATEZOLIZUMAB
     Indication: Pleural mesothelioma malignant
     Route: 042
     Dates: start: 20200409
  2. ATEZOLIZUMAB [Suspect]
     Active Substance: ATEZOLIZUMAB
     Indication: Mesothelioma malignant
     Route: 042
     Dates: start: 20200430
  3. CISPLATIN [Suspect]
     Active Substance: CISPLATIN
     Indication: Pleural mesothelioma malignant
     Dosage: 75MG/M2 IV OVER 2 HOURS ON DAY 1
     Route: 042
     Dates: start: 20200409
  4. CISPLATIN [Suspect]
     Active Substance: CISPLATIN
     Indication: Mesothelioma malignant
     Route: 042
     Dates: start: 20200430
  5. PEMETREXED [Suspect]
     Active Substance: PEMETREXED
     Indication: Pleural mesothelioma malignant
     Dosage: 500MG/M2 IV OVER 10 MINUTES ON DAY 1
     Route: 042
     Dates: start: 20200409
  6. PEMETREXED [Suspect]
     Active Substance: PEMETREXED
     Indication: Mesothelioma malignant
     Route: 042
     Dates: start: 20200430

REACTIONS (4)
  - Febrile neutropenia [Recovered/Resolved]
  - Hypertension [Unknown]
  - Death [Fatal]
  - Pneumonia [Unknown]

NARRATIVE: CASE EVENT DATE: 20200423
